FAERS Safety Report 13403138 (Version 1)
Quarter: 2017Q2

REPORT INFORMATION
  Report Type: Spontaneous
  Country: US (occurrence: US)
  Receive Date: 20170404
  Receipt Date: 20170404
  Transmission Date: 20170830
  Serious: No
  Sender: FDA-Public Use
  Company Number: US-ROCHE-1834524

PATIENT
  Sex: Male

DRUGS (12)
  1. MORPHINE [Concomitant]
     Active Substance: MORPHINE
     Indication: PROCTALGIA
     Route: 065
  2. TYLENOL [Concomitant]
     Active Substance: ACETAMINOPHEN
     Dosage: AS NEEDED
     Route: 065
  3. AVASTIN [Suspect]
     Active Substance: BEVACIZUMAB
     Indication: HEPATIC CANCER
  4. SYNTHROID [Concomitant]
     Active Substance: LEVOTHYROXINE SODIUM
     Dosage: 75 MCG
     Route: 065
  5. METHADONE [Concomitant]
     Active Substance: METHADONE HYDROCHLORIDE
     Indication: PAIN
     Route: 065
  6. AVASTIN [Suspect]
     Active Substance: BEVACIZUMAB
     Indication: BLADDER CANCER
  7. 5-FLUOROURACIL [Concomitant]
     Active Substance: FLUOROURACIL
  8. AVASTIN [Suspect]
     Active Substance: BEVACIZUMAB
     Indication: RECTAL CANCER
     Dosage: EVERY TWO WEEKS
     Route: 065
     Dates: start: 20140522, end: 20151224
  9. COMPAZINE [Concomitant]
     Active Substance: PROCHLORPERAZINE MALEATE
     Indication: NAUSEA
     Dosage: NOT VERY OFTEN
     Route: 065
  10. AVASTIN [Suspect]
     Active Substance: BEVACIZUMAB
     Indication: PULMONARY THROMBOSIS
  11. SENNA [Concomitant]
     Active Substance: SENNA LEAF\SENNOSIDES\SENNOSIDES A AND B
     Dosage: THREE IN THE AM AND THREE AT NIGHT
     Route: 065
  12. VITAMIN B COMPLEX [Concomitant]
     Active Substance: CYANOCOBALAMIN\DEXPANTHENOL\NIACINAMIDE\PYRIDOXINE HYDROCHLORIDE\RIBOFLAVIN 5^-PHOSPHATE SODIUM\THIAMINE HYDROCHLORIDE\VITAMIN B COMPLEX

REACTIONS (4)
  - Alopecia [Unknown]
  - Neuropathy peripheral [Unknown]
  - Nail injury [Unknown]
  - Metastatic neoplasm [Unknown]
